FAERS Safety Report 5848965-5 (Version None)
Quarter: 2008Q3

REPORT INFORMATION
  Report Type: 
  Country: None (occurrence: None)
  Receive Date: 20080819
  Receipt Date: 20080813
  Transmission Date: 20090109
  Serious: Yes (Death)
  Sender: FDA-Public Use
  Company Number: PHHY2008AU17918

PATIENT

DRUGS (1)
  1. GLEEVEC [Suspect]
     Indication: LEUKAEMIA

REACTIONS (1)
  - CARDIAC OPERATION [None]
